FAERS Safety Report 10080506 (Version 1)
Quarter: 2014Q2

REPORT INFORMATION
  Report Type: Report from Study
  Country: US (occurrence: US)
  Receive Date: 20140416
  Receipt Date: 20140416
  Transmission Date: 20141212
  Serious: Yes (Other)
  Sender: FDA-Public Use
  Company Number: US-ROCHE-1383006

PATIENT
  Sex: Male

DRUGS (3)
  1. LUCENTIS [Suspect]
     Indication: RETINAL VEIN OCCLUSION
     Route: 065
  2. AVASTIN [Suspect]
     Indication: RETINAL VEIN OCCLUSION
     Route: 065
  3. EYLEA [Concomitant]

REACTIONS (2)
  - Eye inflammation [Unknown]
  - Drug ineffective [Unknown]
